FAERS Safety Report 4739122-4 (Version None)
Quarter: 2005Q3

REPORT INFORMATION
  Report Type: 
  Country: None (occurrence: None)
  Receive Date: 20050810
  Receipt Date: 20050419
  Transmission Date: 20060218
  Serious: No
  Sender: FDA-Public Use
  Company Number: US-GLAXOSMITHKLINE-A0554871A

PATIENT
  Sex: Female

DRUGS (2)
  1. PAXIL CR [Suspect]
     Indication: DEPRESSION
     Route: 048
  2. PAROXETINE HCL [Suspect]
     Indication: DEPRESSION

REACTIONS (3)
  - ANXIETY [None]
  - DECREASED INTEREST [None]
  - DRUG INEFFECTIVE [None]
